FAERS Safety Report 11226478 (Version 1)
Quarter: 2015Q2

REPORT INFORMATION
  Report Type: Report from Study
  Country: NL (occurrence: NL)
  Receive Date: 20150629
  Receipt Date: 20150629
  Transmission Date: 20150821
  Serious: Yes (Death)
  Sender: FDA-Public Use
  Company Number: PHHY2015NL029596

PATIENT
  Sex: Female

DRUGS (1)
  1. TOBI [Suspect]
     Active Substance: TOBRAMYCIN
     Indication: KLEBSIELLA INFECTION
     Dosage: UNK (28 DAY SCHEDULE)
     Route: 055

REACTIONS (3)
  - Oral pain [Unknown]
  - Off label use [Unknown]
  - Death [Fatal]
